FAERS Safety Report 8782366 (Version 1)
Quarter: 2012Q4

REPORT INFORMATION
  Report Type: 
  Country: US (occurrence: US)
  Receive Date: 20120913
  Receipt Date: 20120913
  Transmission Date: 20130627
  Serious: Yes (Other)
  Sender: FDA-Public Use
  Company Number: CHPA2012US019393

PATIENT
  Age: 78 Year
  Sex: Male

DRUGS (1)
  1. GAS-X EXTSTR CHEWABLE TABS CHERRY CREME [Suspect]
     Indication: FLATULENCE
     Dosage: 1 DF, BID
     Route: 048
     Dates: start: 201204

REACTIONS (2)
  - Bursitis infective [Recovered/Resolved]
  - Pruritus [Not Recovered/Not Resolved]
